FAERS Safety Report 6749920-3 (Version None)
Quarter: 2010Q2

REPORT INFORMATION
  Report Type: 
  Country: None (occurrence: None)
  Receive Date: 20100527
  Receipt Date: 20100527
  Transmission Date: 20101027
  Serious: Yes (Hospitalization)
  Sender: FDA-Public Use
  Company Number: None

PATIENT
  Age: 58 Year
  Sex: Female
  Weight: 76.2043 kg

DRUGS (1)
  1. FLUOROURACIL [Suspect]
     Indication: RECTAL CANCER STAGE IV
     Dosage: 800MG PER METER SQUARED DAILY CONTINUOUS, X 5 D IN DRIP
     Route: 041
     Dates: start: 20100217, end: 20100217

REACTIONS (1)
  - CEREBROVASCULAR ACCIDENT [None]
